FAERS Safety Report 8508649-1 (Version None)
Quarter: 2012Q3

REPORT INFORMATION
  Report Type: 
  Country: None (occurrence: None)
  Receive Date: 20120713
  Receipt Date: 20120705
  Transmission Date: 20120928
  Serious: Yes (Life-Threatening)
  Sender: FDA-Public Use
  Company Number: FR-SANOFI-AVENTIS-2012SA047724

PATIENT
  Age: 84 Year
  Sex: Female

DRUGS (4)
  1. RIFADIN [Suspect]
     Route: 042
     Dates: start: 20120529, end: 20120616
  2. BACTRIM [Suspect]
     Route: 042
     Dates: start: 20120522, end: 20120606
  3. ORBENIN CAP [Suspect]
     Route: 042
     Dates: start: 20120523, end: 20120616
  4. FLUCONAZOLE [Suspect]
     Route: 042
     Dates: start: 20120606, end: 20120613

REACTIONS (3)
  - NEUTROPENIA [None]
  - PANCYTOPENIA [None]
  - THROMBOCYTOPENIA [None]
